FAERS Safety Report 14099201 (Version 2)
Quarter: 2018Q1

REPORT INFORMATION
  Report Type: Spontaneous
  Country: JP (occurrence: JP)
  Receive Date: 20171017
  Receipt Date: 20180315
  Transmission Date: 20180508
  Serious: Yes (Other)
  Sender: FDA-Public Use
  Company Number: JP-PFIZER INC-2017441619

PATIENT
  Age: 70 Year
  Sex: Female

DRUGS (1)
  1. LYRICA [Suspect]
     Active Substance: PREGABALIN
     Dosage: 25 MG, 2X/DAY
     Route: 048

REACTIONS (4)
  - Renal impairment [Unknown]
  - Condition aggravated [Unknown]
  - Anuria [Unknown]
  - Ureteral neoplasm [Unknown]

NARRATIVE: CASE EVENT DATE: 20171012
